FAERS Safety Report 21720964 (Version 1)
Quarter: 2022Q4

REPORT INFORMATION
  Report Type: Other
  Country: CA (occurrence: CA)
  Receive Date: 20221213
  Receipt Date: 20221213
  Transmission Date: 20230113
  Serious: Yes (Life-Threatening, Hospitalization, Other)
  Sender: FDA-Public Use
  Company Number: CA-APOTEX-2022AP016474

PATIENT
  Sex: Female

DRUGS (6)
  1. FINGOLIMOD [Suspect]
     Active Substance: FINGOLIMOD
     Indication: Relapsing-remitting multiple sclerosis
     Dosage: UNK
     Route: 065
  2. ALEMTUZUMAB [Suspect]
     Active Substance: ALEMTUZUMAB
     Indication: Relapsing-remitting multiple sclerosis
     Dosage: UNK
     Route: 065
  3. GLATIRAMER ACETATE [Suspect]
     Active Substance: GLATIRAMER ACETATE
     Indication: Relapsing-remitting multiple sclerosis
     Dosage: UNK
     Route: 065
  4. INTERFERON BETA-1A [Suspect]
     Active Substance: INTERFERON BETA-1A
     Indication: Relapsing-remitting multiple sclerosis
     Dosage: UNK
     Route: 065
  5. MITOXANTRONE [Suspect]
     Active Substance: MITOXANTRONE HYDROCHLORIDE
     Indication: Relapsing-remitting multiple sclerosis
     Dosage: UNK
     Route: 065
  6. NATALIZUMAB [Suspect]
     Active Substance: NATALIZUMAB
     Indication: Relapsing-remitting multiple sclerosis
     Dosage: UNK
     Route: 065

REACTIONS (28)
  - Abdominal distension [Recovered/Resolved]
  - Aphasia [Recovered/Resolved]
  - Ascites [Recovered/Resolved]
  - Cerebral haemorrhage [Recovered/Resolved]
  - Confusional state [Recovered/Resolved]
  - Dyspnoea [Recovered/Resolved]
  - Encephalopathy [Recovered/Resolved]
  - Epistaxis [Recovered/Resolved]
  - Guillain-Barre syndrome [Recovered/Resolved]
  - Haemorrhagic adrenal infarction [Recovered/Resolved]
  - Hemiparesis [Recovered/Resolved]
  - Hypoaesthesia [Recovered/Resolved]
  - Hyponatraemia [Recovered/Resolved]
  - Immune thrombocytopenia [Recovered/Resolved]
  - Lymphadenopathy [Recovered/Resolved]
  - Muscular weakness [Recovered/Resolved]
  - Myelofibrosis [Recovered/Resolved]
  - Oliguria [Recovered/Resolved]
  - Purpura [Recovered/Resolved]
  - Areflexia [Recovered/Resolved]
  - Renal failure [Recovered/Resolved]
  - Respiratory failure [Recovered/Resolved]
  - Vomiting [Recovered/Resolved]
  - Upper gastrointestinal haemorrhage [Recovered/Resolved]
  - Vasculitis [Recovered/Resolved]
  - Abdominal pain [Recovered/Resolved]
  - Headache [Recovered/Resolved]
  - Nausea [Recovered/Resolved]
